FAERS Safety Report 22387437 (Version 2)
Quarter: 2023Q2

REPORT INFORMATION
  Report Type: Spontaneous
  Country: US (occurrence: US)
  Receive Date: 20230531
  Receipt Date: 20230609
  Transmission Date: 20230722
  Serious: No
  Sender: FDA-Public Use
  Company Number: US-BRISTOL-MYERS SQUIBB COMPANY-2023-076531

PATIENT
  Age: 67 Year
  Sex: Male

DRUGS (4)
  1. REVLIMID [Suspect]
     Active Substance: LENALIDOMIDE
     Indication: Follicular lymphoma
     Dosage: FREQ: DAILY 21 DAYS AND OFF 7 DAYS
     Dates: start: 20230421
  2. REVLIMID [Suspect]
     Active Substance: LENALIDOMIDE
     Dosage: FREQ: DAILY 21 DAYS AND OFF 7 DAYS
     Route: 048
     Dates: start: 20230509
  3. RITUXAN [Concomitant]
     Active Substance: RITUXIMAB
     Indication: Product used for unknown indication
  4. ENTECAVIR [Concomitant]
     Active Substance: ENTECAVIR
     Indication: Product used for unknown indication

REACTIONS (7)
  - Dysgeusia [Unknown]
  - Ageusia [Unknown]
  - Lip swelling [Unknown]
  - Rash macular [Unknown]
  - Rash [Unknown]
  - Dry mouth [Unknown]
  - Dysphagia [Unknown]

NARRATIVE: CASE EVENT DATE: 20230527
